FAERS Safety Report 7406790-8 (Version None)
Quarter: 2011Q2

REPORT INFORMATION
  Report Type: 
  Country: None (occurrence: None)
  Receive Date: 20110411
  Receipt Date: 20110329
  Transmission Date: 20111010
  Serious: Yes (Other)
  Sender: FDA-Public Use
  Company Number: PHHY2011GB25463

PATIENT
  Age: 76 Year
  Sex: Female

DRUGS (9)
  1. ATORVASTATIN [Concomitant]
     Dosage: 20 MG, UNK
     Route: 048
  2. ACETAMINOPHEN AND CODEINE PHOSPHATE [Concomitant]
  3. NITRAZEPAM [Concomitant]
     Dosage: 5 MG, QD
  4. OMEPRAZOLE [Concomitant]
     Dosage: 20 MG, QD
     Route: 048
  5. SENNA [Concomitant]
     Dosage: 15 MG, QD
     Route: 048
  6. ALENDRONATE [Suspect]
     Indication: OSTEOPOROSIS
     Dosage: 70 MG, QW
     Route: 048
     Dates: start: 20100301
  7. ADCAL-D3 [Concomitant]
  8. ASPIRIN [Concomitant]
  9. BISACODYL [Concomitant]
     Dosage: 5 MG, QD
     Route: 048

REACTIONS (5)
  - ERYTHEMA [None]
  - MOBILITY DECREASED [None]
  - OEDEMA PERIPHERAL [None]
  - GAIT DISTURBANCE [None]
  - DRUG ADMINISTRATION ERROR [None]
